FAERS Safety Report 24651138 (Version 4)
Quarter: 2025Q4

REPORT INFORMATION
  Report Type: Report from Study
  Country: US (occurrence: None)
  Receive Date: 20241122
  Receipt Date: 20251113
  Transmission Date: 20260118
  Serious: Yes (Other)
  Sender: UCB
  Company Number: US-UCBSA-2024060082

PATIENT
  Age: 4 Year
  Weight: 23.8 kg

DRUGS (26)
  1. FENFLURAMINE [Suspect]
     Active Substance: FENFLURAMINE
     Indication: Lennox-Gastaut syndrome
     Dosage: 5.72 MILLIGRAM, 2X/DAY (BID)
  2. FENFLURAMINE [Suspect]
     Active Substance: FENFLURAMINE
     Dosage: 2.6 MILLILITER, 2X/DAY (BID)
  3. FENFLURAMINE [Suspect]
     Active Substance: FENFLURAMINE
     Dosage: 11.44 MG/DAY
  4. BRIVIACT [Concomitant]
     Active Substance: BRIVARACETAM
     Indication: Product used for unknown indication
     Dosage: TAKE 2.75 MILLILITER (27.5 MG TOTAL) BY MOUTH EVERY MORNING AND 3 MILLILITERS (30 MILLIGRAM TOTAL) EVERY EVENING AT BEDTIME
  5. VIMPAT [Concomitant]
     Active Substance: LACOSAMIDE
     Indication: Product used for unknown indication
     Dosage: 4 MILLILITER, 2X/DAY (BID)
  6. TYLENOL [Concomitant]
     Active Substance: ACETAMINOPHEN
     Indication: Product used for unknown indication
     Dosage: 160MG /5 ML ORAL LIQUID
  7. PROVENTIL [Concomitant]
     Active Substance: ALBUTEROL
     Indication: Wheezing
     Dosage: TAKE 3 MILLILITERS (2.5 MG TOTAL) BY NEBULIZATION EVERY 4 HOURS AS NEEDED
  8. PROVENTIL [Concomitant]
     Active Substance: ALBUTEROL
     Indication: Dyspnoea
  9. ATROPINE SULFATE [Concomitant]
     Active Substance: ATROPINE SULFATE
     Indication: Secretion discharge
     Dosage: APPLY ONE DROP TO EYE DAILY
  10. FLEQSUVY [Concomitant]
     Active Substance: BACLOFEN
     Indication: Product used for unknown indication
     Dosage: 10 MILLIGRAM, 3X/DAY (TID)
  11. PULMICORT TURBUHALER [Concomitant]
     Active Substance: BUDESONIDE
     Indication: Product used for unknown indication
     Dosage: TAKE 2 MILLILITER (0.25 MILLIGRAM TOTAL) BY NEBULIZATION 2 TIMES DAILY
  12. EPIDIOLEX [Concomitant]
     Active Substance: CANNABIDIOL
     Indication: Product used for unknown indication
     Dosage: 1.8 MILLILITER, 2X/DAY (BID)
  13. CHOLECALCIFEROL [Concomitant]
     Active Substance: CHOLECALCIFEROL
     Indication: Product used for unknown indication
     Dosage: 1 MILLILITER DAILY
  14. KLONOPIN [Concomitant]
     Active Substance: CLONAZEPAM
     Indication: Dystonia
     Dosage: TAKE ? TABLET VIA G TUBE 3 TIMES DAILY PLUS ? TABLET AS NEEDED
  15. KLONOPIN [Concomitant]
     Active Substance: CLONAZEPAM
     Indication: Irritability
  16. DIASTAT [Concomitant]
     Active Substance: DIAZEPAM
     Indication: Seizure
     Dosage: INSERT 7.5 MG RECTALLY AS NEEDED
  17. FLONASE ALLERGY RELIEF [Concomitant]
     Active Substance: FLUTICASONE PROPIONATE
     Indication: Product used for unknown indication
     Dosage: 1 SPRAY IN EACH NOSTRIL DAILY
  18. SANI-SUPP [Concomitant]
     Indication: Constipation
     Dosage: PLACE 1 SUPPOSITORY RECTALLY AS NEEDED
  19. ROBINUL [Concomitant]
     Active Substance: GLYCOPYRROLATE
     Indication: Product used for unknown indication
     Dosage: 0.5 MILLIGRAM, 3X/DAY (TID)
  20. ATROVENT [Concomitant]
     Active Substance: IPRATROPIUM BROMIDE
     Indication: Wheezing
     Dosage: 2.5 MILLILITER, 3X/DAY (TID)
  21. ATROVENT [Concomitant]
     Active Substance: IPRATROPIUM BROMIDE
     Indication: Dyspnoea
  22. BACTROBAN [Concomitant]
     Active Substance: MUPIROCIN CALCIUM
     Indication: Product used for unknown indication
  23. PRILOSEC [Concomitant]
     Active Substance: OMEPRAZOLE MAGNESIUM
     Indication: Product used for unknown indication
     Dosage: 20 MILLIGRAM, ONCE DAILY (QD)
  24. ZOFRAN [Concomitant]
     Active Substance: ONDANSETRON HYDROCHLORIDE
     Indication: Product used for unknown indication
     Dosage: BY FEEDING TUBE ROUTE
  25. MIRALAX [Concomitant]
     Active Substance: POLYETHYLENE GLYCOL 3350
     Indication: Product used for unknown indication
     Dosage: 9 GRAM PER G TUBE ROUTE DAILY
  26. SODIUM CHLORIDE [Concomitant]
     Active Substance: SODIUM CHLORIDE
     Indication: Product used for unknown indication
     Dosage: TAKE BY NEBULIZATION AS NEEDED FOR OTHER( TO BE USED BID DURING RESPIRATORY ILLNESS)

REACTIONS (1)
  - Mitral valve incompetence [Unknown]
